FAERS Safety Report 8905846 (Version 1)
Quarter: 2012Q4

REPORT INFORMATION
  Report Type: 
  Country: US (occurrence: US)
  Receive Date: 20121113
  Receipt Date: 20121113
  Transmission Date: 20130627
  Serious: Yes (Other)
  Sender: FDA-Public Use
  Company Number: US-PFIZER INC-2012282803

PATIENT

DRUGS (1)
  1. LIPITOR [Suspect]
     Dosage: UNK

REACTIONS (3)
  - Osteoarthritis [Unknown]
  - Pain in extremity [Unknown]
  - Toothache [Unknown]
